FAERS Safety Report 20489430 (Version 2)
Quarter: 2022Q1

REPORT INFORMATION
  Report Type: Report from Study
  Country: US (occurrence: US)
  Receive Date: 20220218
  Receipt Date: 20220318
  Transmission Date: 20220423
  Serious: Yes (Hospitalization)
  Sender: FDA-Public Use
  Company Number: US-ABBVIE-22K-163-4282686-00

PATIENT
  Sex: Female

DRUGS (1)
  1. SKYRIZI [Suspect]
     Active Substance: RISANKIZUMAB-RZAA
     Indication: Psoriasis
     Dosage: ON WEEK 0, WEEK 4, THEN EVERY 12 WEEKS.
     Route: 058
     Dates: start: 20211009

REACTIONS (7)
  - Pneumonia [Unknown]
  - Illness [Recovered/Resolved]
  - Nephrolithiasis [Unknown]
  - Immunosuppression [Recovered/Resolved]
  - Psoriasis [Unknown]
  - Influenza like illness [Recovered/Resolved]
  - Asthenia [Recovered/Resolved]

NARRATIVE: CASE EVENT DATE: 20210101
